FAERS Safety Report 8767074 (Version 1)
Quarter: 2012Q4

REPORT INFORMATION
  Report Type: 
  Country: US (occurrence: US)
  Receive Date: 20120830
  Receipt Date: 20120830
  Transmission Date: 20130627
  Serious: Yes (Hospitalization, Other)
  Sender: FDA-Public Use
  Company Number: US-ELI_LILLY_AND_COMPANY-US201208007912

PATIENT
  Age: 62 Year
  Sex: Female

DRUGS (3)
  1. CYMBALTA [Suspect]
     Dosage: 30 mg, qd
     Route: 065
  2. METHADONE [Concomitant]
  3. OXYCODONE [Concomitant]

REACTIONS (3)
  - Hospitalisation [Unknown]
  - Gastrointestinal tube insertion [Unknown]
  - Drug dose omission [Unknown]
